FAERS Safety Report 20587740 (Version 1)
Quarter: 2022Q1

REPORT INFORMATION
  Report Type: Spontaneous
  Country: TR (occurrence: TR)
  Receive Date: 20220314
  Receipt Date: 20220314
  Transmission Date: 20220423
  Serious: Yes (Other)
  Sender: FDA-Public Use
  Company Number: TR-NATCOUSA-2022-NATCOUSA-000036

PATIENT
  Age: 70 Year
  Sex: Female

DRUGS (1)
  1. ERLOTINIB [Suspect]
     Active Substance: ERLOTINIB
     Indication: Non-small cell lung cancer

REACTIONS (2)
  - Ectropion [Recovering/Resolving]
  - Corneal disorder [Recovering/Resolving]
